FAERS Safety Report 18059336 (Version 1)
Quarter: 2020Q3

REPORT INFORMATION
  Report Type: Spontaneous
  Country: AE (occurrence: AE)
  Receive Date: 20200723
  Receipt Date: 20200723
  Transmission Date: 20201103
  Serious: No
  Sender: FDA-Public Use
  Company Number: None

PATIENT
  Age: 39 Year
  Sex: Female
  Weight: 52 kg

DRUGS (2)
  1. CIPROBAY HC OTIC [Suspect]
     Active Substance: CIPROFLOXACIN HYDROCHLORIDE\HYDROCORTISONE
     Indication: EAR INFECTION
     Dosage: ?          QUANTITY:2 DROP(S);?
     Route: 001
     Dates: start: 20200720, end: 20200722
  2. AMOXICILLIN. [Concomitant]
     Active Substance: AMOXICILLIN

REACTIONS (6)
  - Pain [None]
  - Pyrexia [None]
  - Ear discomfort [None]
  - Product physical issue [None]
  - Thrombosis [None]
  - Ear injury [None]

NARRATIVE: CASE EVENT DATE: 20200721
